FAERS Safety Report 10182525 (Version 1)
Quarter: 2014Q2

REPORT INFORMATION
  Report Type: Spontaneous
  Country: US (occurrence: None)
  Receive Date: 20140519
  Receipt Date: 20140519
  Transmission Date: 20141212
  Serious: No
  Sender: FDA-Public Use
  Company Number: None

PATIENT
  Age: 27 Year
  Sex: Female

DRUGS (1)
  1. MIRENA [Suspect]
     Indication: CONTRACEPTION
     Dates: start: 20130916, end: 20140518

REACTIONS (5)
  - Device expulsion [None]
  - Weight increased [None]
  - Feeling abnormal [None]
  - Muscle spasms [None]
  - Migraine [None]
